FAERS Safety Report 5095547-1 (Version None)
Quarter: 2006Q3

REPORT INFORMATION
  Report Type: 
  Country: None (occurrence: None)
  Receive Date: 20060901
  Receipt Date: 20060824
  Transmission Date: 20061208
  Serious: Yes (Other)
  Sender: FDA-Public Use
  Company Number: ZA-ABBOTT-06P-143-0342085-00

PATIENT
  Sex: Female

DRUGS (3)
  1. KALETRA [Suspect]
     Indication: PROPHYLAXIS AGAINST HIV INFECTION
     Route: 048
     Dates: start: 20060316, end: 20060324
  2. KALETRA [Suspect]
     Route: 048
     Dates: start: 20060326, end: 20060326
  3. LAMIVUDINE + ZIDOVUDINE [Concomitant]
     Indication: PROPHYLAXIS AGAINST HIV INFECTION
     Route: 048
     Dates: start: 20060314

REACTIONS (7)
  - ARTHRITIS [None]
  - EOSINOPHILIA [None]
  - ERYTHEMA [None]
  - JAUNDICE [None]
  - OEDEMA [None]
  - PAIN [None]
  - PYREXIA [None]
